FAERS Safety Report 8555105 (Version 3)
Quarter: 2013Q1

REPORT INFORMATION
  Report Type: Report from Study
  Country: US (occurrence: US)
  Receive Date: 20120510
  Receipt Date: 20130103
  Transmission Date: 20140127
  Serious: Yes (Other)
  Sender: FDA-Public Use
  Company Number: US-PURDUE-USA-2012-0086518

PATIENT
  Age: 57 Year
  Sex: Female

DRUGS (1)
  1. OXYCONTIN (NDA 22-272) [Suspect]
     Indication: PRODUCT USED FOR UNKNOWN INDICATION
     Dosage: 80 MG, EVERY 8 HOURS
     Route: 048

REACTIONS (11)
  - Fall [Not Recovered/Not Resolved]
  - Head injury [Unknown]
  - Musculoskeletal pain [Unknown]
  - Tendon injury [Unknown]
  - Rotator cuff syndrome [Unknown]
  - Muscle injury [Recovered/Resolved]
  - Pain [Not Recovered/Not Resolved]
  - Insomnia [Not Recovered/Not Resolved]
  - Diarrhoea [Not Recovered/Not Resolved]
  - Tremor [Not Recovered/Not Resolved]
  - Drug effect decreased [Unknown]
